FAERS Safety Report 6724559-4 (Version None)
Quarter: 2010Q2

REPORT INFORMATION
  Report Type: 
  Country: None (occurrence: None)
  Receive Date: 20100513
  Receipt Date: 20100504
  Transmission Date: 20101027
  Serious: Yes (Death, Other)
  Sender: FDA-Public Use
  Company Number: CH-WYE-H15077910

PATIENT
  Age: 79 Year
  Sex: Female

DRUGS (9)
  1. CORDARONE [Suspect]
     Route: 048
  2. LUDIOMIL [Interacting]
     Route: 048
  3. TRAMAL [Interacting]
     Dosage: AS NEEDED
  4. FOLIC ACID [Concomitant]
  5. XANAX [Concomitant]
  6. NEXIUM [Concomitant]
  7. LEVOTHYROXINE SODIUM [Concomitant]
  8. TENORETIC 100 [Interacting]
     Route: 048
  9. COZAAR [Concomitant]

REACTIONS (3)
  - CARDIO-RESPIRATORY ARREST [None]
  - DRUG INTERACTION [None]
  - ELECTROCARDIOGRAM QT INTERVAL [None]
